FAERS Safety Report 4945225-1 (Version None)
Quarter: 2006Q1

REPORT INFORMATION
  Report Type: 
  Country: None (occurrence: None)
  Receive Date: 20060117
  Receipt Date: 20051021
  Transmission Date: 20060701
  Serious: Yes (Death)
  Sender: FDA-Public Use
  Company Number: A03200503367

PATIENT
  Age: 83 Year
  Sex: Male

DRUGS (3)
  1. PLAVIX [Suspect]
     Indication: STENT PLACEMENT
     Dosage: 300 MG - ORAL
     Route: 048
  2. ASPIRIN [Suspect]
     Dosage: ORAL
     Route: 048
  3. ANGIOMAX [Suspect]
     Indication: ANTICOAGULANT THERAPY
     Dosage: 0.75 MG/KG BOLUS LOADING DOSE FOLLOWED BY 1.75 MG/KG/HR - INTRAVENOUS NOS
     Route: 042
     Dates: start: 20050725

REACTIONS (1)
  - CEREBRAL HAEMORRHAGE [None]
